FAERS Safety Report 5255002-2 (Version None)
Quarter: 2007Q1

REPORT INFORMATION
  Report Type: 
  Country: None (occurrence: None)
  Receive Date: 20070305
  Receipt Date: 20070219
  Transmission Date: 20070707
  Serious: Yes (Hospitalization, Other)
  Sender: FDA-Public Use
  Company Number: PHEH2007US02301

PATIENT
  Age: 55 Year
  Sex: Female

DRUGS (13)
  1. CRESTOR [Concomitant]
     Dosage: 10 MG, QD
     Route: 048
  2. TRICOR [Concomitant]
     Dosage: 48 MG, QD
     Route: 048
  3. PROVERA [Suspect]
     Indication: HORMONE REPLACEMENT THERAPY
     Dosage: UNK, UNK
     Route: 048
     Dates: start: 19900101, end: 19910101
  4. PREMPRO [Suspect]
     Route: 048
     Dates: start: 19910101, end: 19980101
  5. NORVASC [Concomitant]
     Indication: HYPERTENSION
     Dosage: 5 MG, QD
     Route: 048
  6. GLUCOPHAGE [Concomitant]
     Indication: DIABETES MELLITUS
     Dosage: 100 MG, QD
     Route: 048
  7. METOPROLOL TARTRATE [Concomitant]
     Indication: HYPERTENSION
     Dosage: 50 MG, BID
     Route: 048
  8. ACETYLSALICYLIC ACID SRT [Concomitant]
     Dosage: 325 MG, QD
     Route: 048
  9. PRAVACHOL [Concomitant]
     Route: 048
  10. PLAVIX [Concomitant]
     Route: 048
  11. ZETIA [Concomitant]
     Dosage: 10 MG, QD
     Route: 048
     Dates: start: 20060215
  12. ESTRACE [Suspect]
  13. ESTRADERM [Suspect]
     Indication: HORMONE REPLACEMENT THERAPY
     Route: 062

REACTIONS (21)
  - BUNDLE BRANCH BLOCK BILATERAL [None]
  - CARDIAC ABLATION [None]
  - CATHETERISATION CARDIAC [None]
  - CHEST PAIN [None]
  - CORONARY ARTERY DISEASE [None]
  - DEEP VEIN THROMBOSIS [None]
  - DEPRESSION [None]
  - DYSPNOEA [None]
  - FATIGUE [None]
  - HEADACHE [None]
  - MYOCARDIAL INFARCTION [None]
  - OEDEMA PERIPHERAL [None]
  - PALPITATIONS [None]
  - PERCUTANEOUS CORONARY INTERVENTION [None]
  - PRESYNCOPE [None]
  - STENT PLACEMENT [None]
  - SUPRAVENTRICULAR TACHYCARDIA [None]
  - TACHYCARDIA [None]
  - THROMBOPHLEBITIS SUPERFICIAL [None]
  - VASCULAR BYPASS GRAFT [None]
  - VISUAL DISTURBANCE [None]
